FAERS Safety Report 10254921 (Version 1)
Quarter: 2014Q2

REPORT INFORMATION
  Report Type: Report from Study
  Country: JP (occurrence: JP)
  Receive Date: 20140624
  Receipt Date: 20140624
  Transmission Date: 20141212
  Serious: Yes (Other)
  Sender: FDA-Public Use
  Company Number: JP-ASTELLAS-2014JP009752

PATIENT
  Sex: Female

DRUGS (8)
  1. TACROLIMUS [Suspect]
     Indication: PROPHYLAXIS AGAINST GRAFT VERSUS HOST DISEASE
     Dosage: UNK, UNKNOWN FREQ.
     Route: 065
  2. METHYLPREDNISOLONE [Concomitant]
     Indication: PROPHYLAXIS AGAINST GRAFT VERSUS HOST DISEASE
     Route: 065
  3. ANTIBIOTICS [Concomitant]
     Indication: ANTIBIOTIC THERAPY
     Route: 048
  4. COTRIMOXAZOLE [Concomitant]
     Indication: ANTIFUNGAL PROPHYLAXIS
     Route: 065
  5. ACYCLOVIR                          /00587301/ [Concomitant]
     Indication: ANTIVIRAL PROPHYLAXIS
     Route: 065
  6. ACYCLOVIR                          /00587301/ [Concomitant]
     Route: 065
  7. GANCICLOVIR                        /00784202/ [Concomitant]
     Indication: ANTIVIRAL PROPHYLAXIS
     Route: 065
  8. IMMUNOGLOBULIN                     /07494701/ [Concomitant]
     Indication: PRODUCT USED FOR UNKNOWN INDICATION
     Dosage: 100 MG/KG,EVERY 2WEEKS
     Route: 042

REACTIONS (2)
  - Acute graft versus host disease [Unknown]
  - Drug ineffective [Unknown]
